FAERS Safety Report 11081076 (Version 4)
Quarter: 2015Q2

REPORT INFORMATION
  Report Type: Spontaneous
  Country: US (occurrence: US)
  Receive Date: 20150501
  Receipt Date: 20150605
  Transmission Date: 20150821
  Serious: Yes (Hospitalization, Disabling, Other)
  Sender: FDA-Public Use
  Company Number: US-009507513-1201USA03221

PATIENT
  Sex: Female
  Weight: 55.33 kg

DRUGS (6)
  1. FOSAMAX [Suspect]
     Active Substance: ALENDRONATE SODIUM
     Indication: OSTEOPOROSIS
     Dosage: 70 MG, QW
     Route: 048
     Dates: start: 200301, end: 200811
  2. ALENDRONATE SODIUM. [Suspect]
     Active Substance: ALENDRONATE SODIUM
     Indication: OSTEOPENIA
  3. FOSAMAX [Suspect]
     Active Substance: ALENDRONATE SODIUM
     Indication: OSTEOPENIA
  4. FOSAMAX PLUS D [Suspect]
     Active Substance: ALENDRONATE SODIUM\CHOLECALCIFEROL
     Indication: OSTEOPOROSIS
     Dosage: 70-2800 MG, QW
     Route: 048
     Dates: start: 200605, end: 200911
  5. FOSAMAX PLUS D [Suspect]
     Active Substance: ALENDRONATE SODIUM\CHOLECALCIFEROL
     Indication: OSTEOPENIA
  6. ALENDRONATE SODIUM. [Suspect]
     Active Substance: ALENDRONATE SODIUM
     Indication: OSTEOPOROSIS
     Dosage: 70 MG, UNK
     Route: 048
     Dates: start: 20080310, end: 20081015

REACTIONS (30)
  - Intramedullary rod insertion [Unknown]
  - Femur fracture [Not Recovered/Not Resolved]
  - Foot fracture [Unknown]
  - Foot fracture [Unknown]
  - Oedema peripheral [Unknown]
  - Diarrhoea [Unknown]
  - Osteoporosis [Not Recovered/Not Resolved]
  - Anaemia [Unknown]
  - Gastrooesophageal reflux disease [Unknown]
  - Pain in extremity [Unknown]
  - Osteoarthritis [Unknown]
  - Femur fracture [Unknown]
  - Vitamin D deficiency [Unknown]
  - Anaemia postoperative [Unknown]
  - Femur fracture [Unknown]
  - Stress fracture [Not Recovered/Not Resolved]
  - Migraine [Unknown]
  - Arthralgia [Unknown]
  - Rheumatoid arthritis [Unknown]
  - Osteoarthritis [Unknown]
  - Joint effusion [Unknown]
  - Arthralgia [Unknown]
  - Bursitis [Unknown]
  - Low turnover osteopathy [Not Recovered/Not Resolved]
  - Foot fracture [Unknown]
  - Adverse event [Unknown]
  - Tibia fracture [Unknown]
  - Fracture delayed union [Not Recovered/Not Resolved]
  - Foot fracture [Unknown]
  - Breast cyst excision [Unknown]

NARRATIVE: CASE EVENT DATE: 200305
